FAERS Safety Report 22232168 (Version 2)
Quarter: 2023Q2

REPORT INFORMATION
  Report Type: Spontaneous
  Country: US (occurrence: US)
  Receive Date: 20230420
  Receipt Date: 20230609
  Transmission Date: 20230722
  Serious: Yes (Other)
  Sender: FDA-Public Use
  Company Number: US-SA-SAC20230419001159

PATIENT
  Age: 53 Year
  Sex: Female

DRUGS (1)
  1. DUPIXENT [Suspect]
     Active Substance: DUPILUMAB
     Indication: Dermatitis atopic
     Dosage: 300 MG, QOW
     Route: 058

REACTIONS (6)
  - Chronic kidney disease [Unknown]
  - Hypertension [Unknown]
  - Supraventricular tachycardia [Unknown]
  - Hypotension [Unknown]
  - Heart rate irregular [Unknown]
  - Bladder disorder [Unknown]

NARRATIVE: CASE EVENT DATE: 20230401
